FAERS Safety Report 10420550 (Version 2)
Quarter: 2014Q4

REPORT INFORMATION
  Report Type: Spontaneous
  Country: US (occurrence: None)
  Receive Date: 20140714
  Receipt Date: 20141015
  Transmission Date: 20150528
  Serious: Yes (Other)
  Sender: FDA-Public Use
  Company Number: 2014US003345

PATIENT
  Age: 60 Year
  Sex: Male

DRUGS (2)
  1. ICLUSIG [Suspect]
     Active Substance: PONATINIB
     Route: 048
     Dates: start: 20140516, end: 20140603
  2. ICLUSIG [Suspect]
     Active Substance: PONATINIB
     Indication: CHRONIC MYELOID LEUKAEMIA
     Route: 048
     Dates: start: 20140516, end: 20140603

REACTIONS (3)
  - Neutropenia [None]
  - White blood cell count decreased [None]
  - Platelet count abnormal [None]

NARRATIVE: CASE EVENT DATE: 20140530
